FAERS Safety Report 25407242 (Version 1)
Quarter: 2025Q2

REPORT INFORMATION
  Report Type: Spontaneous
  Country: AU (occurrence: AU)
  Receive Date: 20250606
  Receipt Date: 20250606
  Transmission Date: 20250717
  Serious: Yes (Death, Other)
  Sender: NOVARTIS
  Company Number: AU-002147023-NVSC2023AU170518

PATIENT
  Age: 14 Year
  Sex: Male

DRUGS (19)
  1. TISAGENLECLEUCEL [Suspect]
     Active Substance: TISAGENLECLEUCEL
     Indication: B-cell type acute leukaemia
     Route: 042
  2. TISAGENLECLEUCEL [Suspect]
     Active Substance: TISAGENLECLEUCEL
     Indication: B precursor type acute leukaemia
  3. CYTARABINE [Suspect]
     Active Substance: CYTARABINE
     Indication: B precursor type acute leukaemia
     Route: 065
  4. CYTARABINE [Suspect]
     Active Substance: CYTARABINE
     Indication: Lymphodepletion
  5. CYCLOPHOSPHAMIDE [Suspect]
     Active Substance: CYCLOPHOSPHAMIDE
     Indication: Lymphodepletion
     Route: 065
  6. CYCLOPHOSPHAMIDE [Suspect]
     Active Substance: CYCLOPHOSPHAMIDE
     Indication: B precursor type acute leukaemia
     Route: 065
  7. FLUDARABINE PHOSPHATE [Suspect]
     Active Substance: FLUDARABINE PHOSPHATE
     Indication: B precursor type acute leukaemia
     Route: 065
  8. FLUDARABINE PHOSPHATE [Suspect]
     Active Substance: FLUDARABINE PHOSPHATE
     Indication: Lymphodepletion
     Route: 065
  9. METHOTREXATE [Suspect]
     Active Substance: METHOTREXATE
     Indication: B precursor type acute leukaemia
     Route: 037
  10. METHOTREXATE [Suspect]
     Active Substance: METHOTREXATE
     Route: 065
  11. MERCAPTOPURINE [Suspect]
     Active Substance: MERCAPTOPURINE
     Indication: B precursor type acute leukaemia
     Route: 065
  12. VINCRISTINE SULFATE [Suspect]
     Active Substance: VINCRISTINE SULFATE
     Indication: B precursor type acute leukaemia
     Route: 065
  13. PEGASPARGASE [Suspect]
     Active Substance: PEGASPARGASE
     Indication: B precursor type acute leukaemia
     Route: 065
  14. METHOTREXATE [Concomitant]
     Active Substance: METHOTREXATE
     Indication: Chemotherapy
     Route: 065
  15. METHOTREXATE [Concomitant]
     Active Substance: METHOTREXATE
     Route: 037
  16. CYCLOPHOSPHAMIDE [Concomitant]
     Active Substance: CYCLOPHOSPHAMIDE
     Indication: Chemotherapy
     Route: 065
  17. CYTARABINE [Concomitant]
     Active Substance: CYTARABINE
     Indication: Chemotherapy
     Route: 065
  18. DEXAMETHASONE [Concomitant]
     Active Substance: DEXAMETHASONE
     Indication: Neurotoxicity
     Dosage: 8 MG, BID (DAY PLUS 46 FOR 11 DAYS)
     Route: 065
  19. Immunoglobulin [Concomitant]
     Indication: Neurotoxicity
     Route: 065

REACTIONS (6)
  - Disease progression [Fatal]
  - Drug ineffective [Fatal]
  - Neurotoxicity [Recovering/Resolving]
  - Encephalopathy [Recovering/Resolving]
  - Hepatotoxicity [Unknown]
  - Nephropathy toxic [Unknown]
